FAERS Safety Report 5205767-0 (Version None)
Quarter: 2007Q1

REPORT INFORMATION
  Report Type: 
  Country: None (occurrence: None)
  Receive Date: 20070111
  Receipt Date: 20070103
  Transmission Date: 20070707
  Serious: Yes (Life-Threatening, Hospitalization)
  Sender: FDA-Public Use
  Company Number: DE-ROCHE-475991

PATIENT
  Age: 51 Year
  Sex: Male
  Weight: 77 kg

DRUGS (1)
  1. BONIVA [Suspect]
     Indication: OSTEOPOROSIS
     Route: 042
     Dates: start: 20061123, end: 20061123

REACTIONS (5)
  - ASTHMA [None]
  - BRONCHOSPASM [None]
  - CYANOSIS [None]
  - DYSPNOEA [None]
  - SOMNOLENCE [None]
